FAERS Safety Report 24582345 (Version 1)
Quarter: 2024Q4

REPORT INFORMATION
  Report Type: Spontaneous
  Country: US (occurrence: US)
  Receive Date: 20241106
  Receipt Date: 20241106
  Transmission Date: 20250115
  Serious: No
  Sender: ASTELLAS
  Company Number: US-ASTELLAS-2024-AER-014922

PATIENT
  Age: 63 Year
  Sex: Male
  Weight: 89 kg

DRUGS (2)
  1. PADCEV [Suspect]
     Active Substance: ENFORTUMAB VEDOTIN-EJFV
     Indication: Bladder cancer
     Route: 042
     Dates: start: 20240628
  2. KEYTRUDA [Concomitant]
     Active Substance: PEMBROLIZUMAB
     Indication: Bladder cancer
     Route: 065

REACTIONS (3)
  - Rash erythematous [Unknown]
  - Skin exfoliation [Unknown]
  - Off label use [Unknown]

NARRATIVE: CASE EVENT DATE: 20240628
